FAERS Safety Report 8446965-2 (Version None)
Quarter: 2012Q2

REPORT INFORMATION
  Report Type: 
  Country: None (occurrence: None)
  Receive Date: 20120613
  Receipt Date: 20120613
  Transmission Date: 20120825
  Serious: Yes (Disabling)
  Sender: FDA-Public Use
  Company Number: None

PATIENT
  Age: 55 Year
  Sex: Female
  Weight: 54.4316 kg

DRUGS (1)
  1. IMIQUIMOD [Suspect]
     Indication: SKIN CANCER
     Dosage: SMALL AMOUNT TO EFFECTED AREA ONCE A DAY, 8 TIMES TOPICAL
     Route: 061
     Dates: start: 20111028, end: 20111114

REACTIONS (8)
  - APPLICATION SITE BLEEDING [None]
  - EYE IRRITATION [None]
  - VISUAL IMPAIRMENT [None]
  - SWELLING FACE [None]
  - SECRETION DISCHARGE [None]
  - MALAISE [None]
  - NASAL MUCOSAL DISORDER [None]
  - APPLICATION SITE PAIN [None]
